FAERS Safety Report 4685685-7 (Version None)
Quarter: 2005Q2

REPORT INFORMATION
  Report Type: 
  Country: None (occurrence: None)
  Receive Date: 20050608
  Receipt Date: 20050526
  Transmission Date: 20051028
  Serious: Yes (Other)
  Sender: FDA-Public Use
  Company Number: 2005-05-1458

PATIENT
  Age: 45 Year
  Sex: Male

DRUGS (6)
  1. REBETOL [Suspect]
     Indication: HEPATITIS C
     Dosage: 1000 MG QD ORAL
     Route: 048
     Dates: start: 20050323, end: 20050101
  2. PEGASYS [Suspect]
     Indication: HEPATITIS C
     Dosage: 180-135UG QW*
     Dates: start: 20050323, end: 20050101
  3. PEGASYS [Suspect]
     Indication: HEPATITIS C
     Dosage: 180-135UG QW*
     Dates: start: 20050101
  4. PARACETAMOL [Concomitant]
  5. PROZAC [Concomitant]
  6. PANTOPRAZOLE SODIUM [Concomitant]

REACTIONS (4)
  - ABSCESS [None]
  - PROSTATISM [None]
  - STAPHYLOCOCCAL INFECTION [None]
  - URINARY TRACT INFECTION [None]
